FAERS Safety Report 13977791 (Version 3)
Quarter: 2018Q4

REPORT INFORMATION
  Report Type: Spontaneous
  Country: PT (occurrence: PT)
  Receive Date: 20170915
  Receipt Date: 20181227
  Transmission Date: 20190204
  Serious: Yes (Other)
  Sender: FDA-Public Use
  Company Number: PT-PFIZER INC-2011SE39747

PATIENT
  Age: 13 Year
  Sex: Male

DRUGS (4)
  1. CLINDAMYCIN. [Concomitant]
     Active Substance: CLINDAMYCIN
     Indication: BRAIN EMPYEMA
     Dosage: UNK
     Route: 042
  2. VANCOMYCIN [Concomitant]
     Active Substance: VANCOMYCIN
     Indication: BRAIN EMPYEMA
     Dosage: UNK
     Route: 042
  3. CEFTRIAXONE. [Suspect]
     Active Substance: CEFTRIAXONE
     Indication: BRAIN EMPYEMA
     Dosage: UNK
     Route: 042
  4. MEROPENEM. [Suspect]
     Active Substance: MEROPENEM
     Indication: BRAIN EMPYEMA
     Dosage: UNK
     Route: 042

REACTIONS (1)
  - Type IV hypersensitivity reaction [Recovered/Resolved]
